FAERS Safety Report 6251073-5 (Version None)
Quarter: 2009Q2

REPORT INFORMATION
  Report Type: 
  Country: None (occurrence: None)
  Receive Date: 20090630
  Receipt Date: 20090623
  Transmission Date: 20091009
  Serious: Yes (Hospitalization)
  Sender: FDA-Public Use
  Company Number: ES-AMGEN-UK228613

PATIENT
  Sex: Female

DRUGS (12)
  1. PANITUMUMAB [Suspect]
     Indication: COLORECTAL CANCER
     Route: 042
     Dates: start: 20070528
  2. OXALIPLATIN [Suspect]
  3. LEUCOVORIN CALCIUM [Suspect]
  4. FLUORO-URACIL [Suspect]
  5. OMEPRAZOLE [Concomitant]
     Route: 048
  6. RENITEC [Concomitant]
     Route: 048
  7. NOLOTIL /SPA/ [Concomitant]
     Route: 048
  8. LORAZEPAM [Concomitant]
  9. MIRTAZAPINE [Concomitant]
     Route: 048
  10. PRIMPERAN [Concomitant]
     Route: 048
  11. DORMICUM ^ROCHE^ [Concomitant]
     Route: 048
  12. LOPERAMIDE HYDROCHLORIDE [Concomitant]
     Route: 048

REACTIONS (3)
  - ABDOMINAL PAIN [None]
  - DIARRHOEA [None]
  - PYREXIA [None]
